FAERS Safety Report 9793330 (Version 3)
Quarter: 2014Q2

REPORT INFORMATION
  Report Type: Spontaneous
  Country: US (occurrence: US)
  Receive Date: 20140102
  Receipt Date: 20140415
  Transmission Date: 20141212
  Serious: No
  Sender: FDA-Public Use
  Company Number: US-009507513-1312USA009724

PATIENT
  Age: 80 Year
  Sex: Female
  Weight: 70.3 kg

DRUGS (7)
  1. OXYTROL FOR WOMEN [Suspect]
     Indication: MICTURITION URGENCY
     Dosage: 1 DF, Q4D
     Route: 062
     Dates: start: 20131107, end: 20140227
  2. OXYTROL FOR WOMEN [Suspect]
     Indication: POLLAKIURIA
     Dosage: 1 DF, Q4D
     Route: 062
  3. ALLEGRA [Concomitant]
     Indication: SEASONAL ALLERGY
     Dosage: 180 MICROGRAM, QD
  4. ALLEGRA [Concomitant]
     Indication: HOUSE DUST ALLERGY
  5. ALLEGRA [Concomitant]
     Indication: MYCOTIC ALLERGY
  6. PRAVASTATIN SODIUM [Concomitant]
     Indication: BLOOD CHOLESTEROL INCREASED
     Dosage: UNK, UNKNOWN
  7. ASPIRIN [Concomitant]
     Indication: PRODUCT USED FOR UNKNOWN INDICATION
     Dosage: 81 MG, UNKNOWN

REACTIONS (4)
  - Application site pain [Recovered/Resolved]
  - Application site erythema [Recovered/Resolved]
  - Application site pruritus [Recovered/Resolved]
  - Application site rash [Recovered/Resolved]
